FAERS Safety Report 7274532-5 (Version None)
Quarter: 2011Q1

REPORT INFORMATION
  Report Type: 
  Country: None (occurrence: None)
  Receive Date: 20110201
  Receipt Date: 20110201
  Transmission Date: 20110831
  Serious: Yes (Life-Threatening, Hospitalization)
  Sender: FDA-Public Use
  Company Number: None

PATIENT
  Age: 49 Year
  Sex: Male
  Weight: 101 kg

DRUGS (2)
  1. AMLODIPINE BESYLATE AND BENAZEPRIL HCL [Suspect]
     Indication: DIABETES MELLITUS
     Dosage: 1 TAB EVERY DAY PO
     Route: 048
     Dates: start: 20050101, end: 20110120
  2. AMLODIPINE BESYLATE AND BENAZEPRIL HCL [Suspect]
     Indication: HYPERTENSION
     Dosage: 1 TAB EVERY DAY PO
     Route: 048
     Dates: start: 20050101, end: 20110120

REACTIONS (1)
  - ANGIOEDEMA [None]
